FAERS Safety Report 23201035 (Version 3)
Quarter: 2024Q1

REPORT INFORMATION
  Report Type: Spontaneous
  Country: US (occurrence: US)
  Receive Date: 20231118
  Receipt Date: 20240106
  Transmission Date: 20240410
  Serious: Yes (Life-Threatening, Hospitalization, Other)
  Sender: FDA-Public Use
  Company Number: US-MLMSERVICE-20231103-4641992-1

PATIENT
  Age: 69 Year
  Sex: Female

DRUGS (1)
  1. VENLAFAXINE [Suspect]
     Active Substance: VENLAFAXINE HYDROCHLORIDE
     Indication: Depression
     Dosage: UNKNOWN QUANTITIES
     Route: 048

REACTIONS (12)
  - Atrioventricular block first degree [Unknown]
  - Electrocardiogram ST-T segment abnormal [Unknown]
  - Metabolic acidosis [Unknown]
  - Vomiting [Unknown]
  - Electrocardiogram QT prolonged [Recovering/Resolving]
  - Electrocardiogram QRS complex prolonged [Recovering/Resolving]
  - Arrhythmia [Recovering/Resolving]
  - Sinus tachycardia [Recovering/Resolving]
  - Generalised tonic-clonic seizure [Recovered/Resolved]
  - Toxicity to various agents [Unknown]
  - Intentional overdose [Recovering/Resolving]
  - Cardiotoxicity [Unknown]
